APPROVED DRUG PRODUCT: CEFTIN
Active Ingredient: CEFUROXIME AXETIL
Strength: EQ 250MG BASE/5ML
Dosage Form/Route: FOR SUSPENSION;ORAL
Application: N050672 | Product #002
Applicant: GLAXOSMITHKLINE
Approved: Apr 29, 1997 | RLD: Yes | RS: No | Type: DISCN